FAERS Safety Report 24443649 (Version 2)
Quarter: 2024Q4

REPORT INFORMATION
  Report Type: Report from Study
  Country: US (occurrence: US)
  Receive Date: 20241016
  Receipt Date: 20241017
  Transmission Date: 20250115
  Serious: No
  Sender: ROCHE
  Company Number: US-ROCHE-1661250

PATIENT
  Age: 65 Year
  Sex: Female

DRUGS (6)
  1. RITUXAN [Suspect]
     Active Substance: RITUXIMAB
     Indication: Pulmonary fibrosis
     Dosage: DAY 1 AND DAY 15?REPEAT EVERY 6 MONTHS
     Route: 041
     Dates: start: 20151201
  2. RITUXAN [Suspect]
     Active Substance: RITUXIMAB
     Indication: Systemic scleroderma
  3. TRAMADOL [Concomitant]
     Active Substance: TRAMADOL
  4. QUINAPRIL [Concomitant]
     Active Substance: QUINAPRIL
  5. IBUPROFEN [Concomitant]
     Active Substance: IBUPROFEN
  6. DEXILANT [Concomitant]
     Active Substance: DEXLANSOPRAZOLE

REACTIONS (2)
  - Infection [Unknown]
  - Off label use [Unknown]
